FAERS Safety Report 10258641 (Version 1)
Quarter: 2014Q2

REPORT INFORMATION
  Report Type: Spontaneous
  Country: US (occurrence: None)
  Receive Date: 20140624
  Receipt Date: 20140624
  Transmission Date: 20141212
  Serious: Yes (Life-Threatening, Hospitalization, Other)
  Sender: FDA-Public Use
  Company Number: None

PATIENT
  Age: 50 Year
  Sex: Male
  Weight: 84.1 kg

DRUGS (1)
  1. HYDROCHLOROTHIAZIDE/LISINOPRIL [Suspect]
     Indication: ANGIOEDEMA
     Route: 048
     Dates: start: 20130731, end: 20140317

REACTIONS (6)
  - Angioedema [None]
  - Chest X-ray abnormal [None]
  - Dyspnoea [None]
  - Cough [None]
  - Blood urea increased [None]
  - Blood creatinine increased [None]
